FAERS Safety Report 18957404 (Version 5)
Quarter: 2021Q2

REPORT INFORMATION
  Report Type: Report from Study
  Country: US (occurrence: US)
  Receive Date: 20210302
  Receipt Date: 20210406
  Transmission Date: 20210717
  Serious: No
  Sender: FDA-Public Use
  Company Number: NVSC2021US040977

PATIENT
  Sex: Female

DRUGS (4)
  1. GLATOPA [Suspect]
     Active Substance: GLATIRAMER ACETATE
     Dosage: 20 MG
     Route: 058
  2. GLATOPA [Suspect]
     Active Substance: GLATIRAMER ACETATE
     Dosage: 40 MG
     Route: 065
  3. GLATOPA [Suspect]
     Active Substance: GLATIRAMER ACETATE
     Route: 058
  4. GLATOPA [Suspect]
     Active Substance: GLATIRAMER ACETATE
     Indication: MULTIPLE SCLEROSIS
     Dosage: UNK, Q2W
     Route: 065

REACTIONS (15)
  - Pain [Unknown]
  - Emotional disorder [Unknown]
  - Insomnia [Unknown]
  - Haemorrhage [Unknown]
  - Skin ulcer [Unknown]
  - Intra-ocular injection complication [Unknown]
  - Injection site swelling [Unknown]
  - Injection site haemorrhage [Unknown]
  - Injection site pain [Unknown]
  - Lymphadenopathy [Unknown]
  - Device malfunction [Unknown]
  - Headache [Unknown]
  - Fatigue [Unknown]
  - Injection site reaction [Unknown]
  - Injection site mass [Unknown]
